FAERS Safety Report 10569878 (Version 1)
Quarter: 2014Q4

REPORT INFORMATION
  Report Type: Spontaneous
  Country: GB (occurrence: GB)
  Receive Date: 20141107
  Receipt Date: 20141107
  Transmission Date: 20150529
  Serious: Yes (Disabling)
  Sender: FDA-Public Use
  Company Number: GB-009507513-1411GBR002122

PATIENT
  Age: 47 Year
  Sex: Male

DRUGS (2)
  1. SIMVASTATIN. [Suspect]
     Active Substance: SIMVASTATIN
     Indication: BLOOD CHOLESTEROL INCREASED
     Dosage: THE FIRST DOSE(EXACT DOSE UNSPECIFIED)
     Route: 048
  2. SIMVASTATIN. [Suspect]
     Active Substance: SIMVASTATIN
     Dosage: THE CHANGED DOSE(EXACT DOSE UNSPECIFIED)
     Route: 048

REACTIONS (2)
  - Drug ineffective [Unknown]
  - Quality of life decreased [Unknown]
